FAERS Safety Report 13826178 (Version 2)
Quarter: 2017Q3

REPORT INFORMATION
  Report Type: Spontaneous
  Country: IT (occurrence: IT)
  Receive Date: 20170802
  Receipt Date: 20170803
  Transmission Date: 20171127
  Serious: Yes (Other)
  Sender: FDA-Public Use
  Company Number: IT-SA-2017SA138033

PATIENT
  Age: 73 Year
  Sex: Male

DRUGS (10)
  1. HUMALOG [Concomitant]
     Active Substance: INSULIN LISPRO
     Route: 042
  2. CARDIOASPIRIN [Suspect]
     Active Substance: ASPIRIN
     Route: 048
  3. BISOPROLOL FUMARATE. [Suspect]
     Active Substance: BISOPROLOL FUMARATE
     Route: 048
  4. NORVASC [Suspect]
     Active Substance: AMLODIPINE BESYLATE
     Route: 048
  5. MINITRAN [Suspect]
     Active Substance: NITROGLYCERIN
     Route: 065
  6. RANEXA [Suspect]
     Active Substance: RANOLAZINE
     Route: 048
  7. CRESTOR [Concomitant]
     Active Substance: ROSUVASTATIN CALCIUM
  8. IRBESARTAN. [Suspect]
     Active Substance: IRBESARTAN
     Route: 048
  9. CARDURA [Suspect]
     Active Substance: DOXAZOSIN MESYLATE
     Route: 048
  10. LANTUS [Concomitant]
     Active Substance: INSULIN GLARGINE
     Route: 058

REACTIONS (3)
  - Bradycardia [Unknown]
  - Hypotension [Unknown]
  - Asthenia [Unknown]

NARRATIVE: CASE EVENT DATE: 20170624
